FAERS Safety Report 20672355 (Version 1)
Quarter: 2022Q2

REPORT INFORMATION
  Report Type: Spontaneous
  Country: US (occurrence: US)
  Receive Date: 20220405
  Receipt Date: 20220405
  Transmission Date: 20220721
  Serious: No
  Sender: FDA-Public Use
  Company Number: US-HERON THERAPEUTICS, INC-HRTX-2022-000725

PATIENT
  Age: 57 Year
  Sex: Female

DRUGS (6)
  1. ZYNRELEF [Suspect]
     Active Substance: BUPIVACAINE\MELOXICAM
     Indication: Postoperative analgesia
     Dosage: 12 MILLILITER, SINGLE
     Route: 026
     Dates: start: 20220110, end: 20220110
  2. BUPIVACAINE [Concomitant]
     Active Substance: BUPIVACAINE
     Indication: Product used for unknown indication
     Dosage: 30 CUBIC CENTIMITRE, SINGLE
     Dates: start: 20220110, end: 20220110
  3. EPINEPHRINE [Concomitant]
     Active Substance: EPINEPHRINE
     Indication: Product used for unknown indication
     Dosage: 1 CUBIC CENTIMETRE, SINGLE
     Dates: start: 20220110, end: 20220110
  4. SODIUM CHLORIDE [Concomitant]
     Active Substance: SODIUM CHLORIDE
     Indication: Product used for unknown indication
     Dosage: 40 CUBIC CENTIMETRE, SINGLE
     Dates: start: 20220110, end: 20220110
  5. KETOROLAC [Concomitant]
     Active Substance: KETOROLAC TROMETHAMINE
     Indication: Product used for unknown indication
     Dosage: 30 CUBIC CENTIMETRE, SINGLE
     Dates: start: 20220110, end: 20220110
  6. CELEBREX [Concomitant]
     Active Substance: CELECOXIB
     Indication: Product used for unknown indication
     Dosage: UNK

REACTIONS (2)
  - Musculoskeletal stiffness [Recovered/Resolved]
  - Drug ineffective [Unknown]

NARRATIVE: CASE EVENT DATE: 20220111
